FAERS Safety Report 4385867-8 (Version None)
Quarter: 2004Q2

REPORT INFORMATION
  Report Type: 
  Country: None (occurrence: None)
  Receive Date: 20040628
  Receipt Date: 20040317
  Transmission Date: 20050107
  Serious: Yes (Hospitalization)
  Sender: FDA-Public Use
  Company Number: US-GLAXOSMITHKLINE-A0503227A

PATIENT
  Age: 78 Year
  Sex: Female

DRUGS (6)
  1. DIGOXIN [Suspect]
     Indication: CARDIAC FAILURE
     Dosage: .125MG VARIABLE DOSE
     Route: 048
     Dates: start: 20031101, end: 20031201
  2. HAWTHORN [Concomitant]
  3. FLAX SEED OIL [Concomitant]
  4. MAGNESIUM [Concomitant]
  5. FOLIC ACID [Concomitant]
  6. SELENIUM TRACE METAL ADDITIVE [Concomitant]

REACTIONS (7)
  - CARDIAC FAILURE [None]
  - CEREBROVASCULAR ACCIDENT [None]
  - DISORIENTATION [None]
  - DISTURBANCE IN ATTENTION [None]
  - DYSPNOEA [None]
  - HEADACHE [None]
  - SPEECH DISORDER [None]
